FAERS Safety Report 9703247 (Version 1)
Quarter: 2013Q4

REPORT INFORMATION
  Report Type: Report from Study
  Country: US (occurrence: US)
  Receive Date: 20131122
  Receipt Date: 20131122
  Transmission Date: 20140711
  Serious: Yes (Other)
  Sender: FDA-Public Use
  Company Number: US-ROCHE-1303996

PATIENT
  Sex: Female
  Weight: 131.66 kg

DRUGS (7)
  1. NUTROPIN [Suspect]
     Indication: GROWTH HORMONE DEFICIENCY
     Route: 058
  2. ATENOLOL [Concomitant]
     Route: 048
  3. CRESTOR [Concomitant]
     Route: 048
  4. CYTOMEL [Concomitant]
     Dosage: DAILY 5 TIMES A WEEK
     Route: 048
  5. SYNTHROID [Concomitant]
     Route: 048
  6. VITAMIN B6 [Concomitant]
     Route: 065
  7. VYVANSE [Concomitant]
     Route: 065

REACTIONS (13)
  - Local swelling [Unknown]
  - Heart rate increased [Unknown]
  - Tenderness [Unknown]
  - Somnolence [Unknown]
  - Weight increased [Unknown]
  - Fatigue [Unknown]
  - Muscular weakness [Unknown]
  - Muscle spasms [Unknown]
  - Headache [Unknown]
  - Dizziness [Unknown]
  - Menstruation irregular [Unknown]
  - Myalgia [Unknown]
  - Dry skin [Unknown]
